FAERS Safety Report 6702657-9 (Version None)
Quarter: 2010Q2

REPORT INFORMATION
  Report Type: 
  Country: None (occurrence: None)
  Receive Date: 20100429
  Receipt Date: 20100416
  Transmission Date: 20101027
  Serious: No
  Sender: FDA-Public Use
  Company Number: US-B.I. PHARMACEUTICALS,INC./RIDGEFIELD-2010-BP-03511BP

PATIENT
  Sex: Male

DRUGS (11)
  1. COMBIVENT [Suspect]
     Indication: ASTHMA
     Route: 055
  2. COMBIVENT [Suspect]
     Indication: DYSPNOEA
  3. ADVAIR DISKUS 100/50 [Concomitant]
     Indication: ASTHMA
  4. SYNTHROID [Concomitant]
     Indication: HYPOTHYROIDISM
  5. PREVACID [Concomitant]
     Indication: GASTROOESOPHAGEAL REFLUX DISEASE
  6. GEODON [Concomitant]
     Indication: DEPRESSION
  7. GEODON [Concomitant]
     Indication: ANXIETY
  8. LASIX [Concomitant]
  9. POTASSIUM [Concomitant]
  10. FOLIC ACID [Concomitant]
  11. OTHER UNSPECIFIED MEDICATIONS [Concomitant]

REACTIONS (6)
  - CHRONIC OBSTRUCTIVE PULMONARY DISEASE [None]
  - COUGH [None]
  - DYSPNOEA [None]
  - INAPPROPRIATE SCHEDULE OF DRUG ADMINISTRATION [None]
  - INCREASED UPPER AIRWAY SECRETION [None]
  - PHARYNGITIS STREPTOCOCCAL [None]
